FAERS Safety Report 21002410 (Version 2)
Quarter: 2022Q2

REPORT INFORMATION
  Report Type: Spontaneous
  Country: IN (occurrence: IN)
  Receive Date: 20220624
  Receipt Date: 20220629
  Transmission Date: 20220720
  Serious: No
  Sender: FDA-Public Use
  Company Number: IN-LUPIN LIMITED-2022-08985

PATIENT
  Age: 19 Year
  Sex: Female

DRUGS (1)
  1. LEVOFLOXACIN [Suspect]
     Active Substance: LEVOFLOXACIN
     Indication: Pyrexia
     Dosage: UNK
     Route: 065

REACTIONS (3)
  - Prescription drug used without a prescription [Unknown]
  - Unintentional use for unapproved indication [Unknown]
  - No adverse event [Unknown]
